FAERS Safety Report 5427894-5 (Version None)
Quarter: 2007Q3

REPORT INFORMATION
  Report Type: 
  Country: None (occurrence: None)
  Receive Date: 20070828
  Receipt Date: 20070816
  Transmission Date: 20080115
  Serious: Yes (Other)
  Sender: FDA-Public Use
  Company Number: US-PFIZER INC-2007068873

PATIENT

DRUGS (2)
  1. LYRICA [Suspect]
  2. INTERFERON [Concomitant]
     Indication: HEPATITIS C

REACTIONS (1)
  - PORPHYRIA [None]
